FAERS Safety Report 6067528-2 (Version None)
Quarter: 2009Q1

REPORT INFORMATION
  Report Type: 
  Country: None (occurrence: None)
  Receive Date: 20090205
  Receipt Date: 20090126
  Transmission Date: 20090719
  Serious: Yes (Other)
  Sender: FDA-Public Use
  Company Number: JP-PFIZER INC-2009160314

PATIENT

DRUGS (1)
  1. CHAMPIX [Suspect]
     Dosage: UNK
     Route: 048

REACTIONS (2)
  - DEMENTIA [None]
  - HALLUCINATION [None]
